FAERS Safety Report 20546736 (Version 4)
Quarter: 2022Q4

REPORT INFORMATION
  Report Type: Spontaneous
  Country: FR (occurrence: FR)
  Receive Date: 20220303
  Receipt Date: 20221213
  Transmission Date: 20230113
  Serious: Yes (Hospitalization)
  Sender: FDA-Public Use
  Company Number: FR-GLAXOSMITHKLINE-FR2022EME035511

PATIENT

DRUGS (1)
  1. BELANTAMAB MAFODOTIN [Suspect]
     Active Substance: BELANTAMAB MAFODOTIN
     Indication: Plasma cell myeloma
     Dosage: 175 MG
     Route: 042
     Dates: start: 20200921

REACTIONS (4)
  - Bone pain [Recovering/Resolving]
  - Proteinuria [Recovering/Resolving]
  - Nausea [Recovered/Resolved]
  - Keratopathy [Recovering/Resolving]

NARRATIVE: CASE EVENT DATE: 20201116
